FAERS Safety Report 9555729 (Version 2)
Quarter: 2013Q4

REPORT INFORMATION
  Report Type: Report from Study
  Country: TH (occurrence: TH)
  Receive Date: 20130926
  Receipt Date: 20131008
  Transmission Date: 20140711
  Serious: Yes (Hospitalization)
  Sender: FDA-Public Use
  Company Number: PHHO2013TH012366

PATIENT
  Age: 28 Year
  Sex: Female
  Weight: 63.2 kg

DRUGS (1)
  1. SOM230 [Suspect]
     Indication: PITUITARY-DEPENDENT CUSHING^S SYNDROME
     Dosage: 600 UG, UNK
     Route: 058
     Dates: start: 20120402, end: 20130923

REACTIONS (1)
  - Cholecystitis acute [Recovering/Resolving]
